FAERS Safety Report 9648153 (Version 2)
Quarter: 2013Q4

REPORT INFORMATION
  Report Type: Spontaneous
  Country: FR (occurrence: FR)
  Receive Date: 20131028
  Receipt Date: 20131028
  Transmission Date: 20140711
  Serious: Yes (Other)
  Sender: FDA-Public Use
  Company Number: PHHY2013FR077633

PATIENT
  Sex: 0

DRUGS (8)
  1. TASIGNA [Suspect]
     Indication: CHRONIC MYELOID LEUKAEMIA
     Dosage: 800 MG, QD
     Route: 048
     Dates: start: 20130321, end: 20130429
  2. TASIGNA [Suspect]
     Dosage: 400 MG, QD
     Route: 048
     Dates: start: 20130712
  3. ESIDREX [Suspect]
  4. NEBIVOLOL [Concomitant]
     Indication: HYPERTENSION
     Dosage: 5 MG, QD
     Route: 048
     Dates: start: 2007
  5. INDAPAMIDE [Concomitant]
     Indication: HYPERTENSION
     Dosage: QD
     Route: 048
     Dates: start: 2007
  6. CACIT D3 [Concomitant]
     Indication: OSTEOPOROSIS
     Dosage: QD
     Route: 048
     Dates: start: 2010, end: 20130228
  7. HYDREA [Concomitant]
     Indication: CHRONIC MYELOID LEUKAEMIA
     Dosage: QID
     Route: 048
     Dates: start: 20130322, end: 20130327
  8. KARDEGIC [Concomitant]
     Indication: THROMBOCYTOSIS
     Dosage: QD
     Route: 048
     Dates: start: 20130322, end: 20130422

REACTIONS (1)
  - Hepatocellular injury [Recovered/Resolved]
